FAERS Safety Report 15809827 (Version 1)
Quarter: 2019Q1

REPORT INFORMATION
  Report Type: Spontaneous
  Country: US (occurrence: US)
  Receive Date: 20190111
  Receipt Date: 20190111
  Transmission Date: 20190417
  Serious: No
  Sender: FDA-Public Use
  Company Number: US-ROCHE-2090321

PATIENT
  Age: 60 Year
  Sex: Male

DRUGS (2)
  1. CORTISONE [Concomitant]
     Active Substance: CORTISONE\HYDROCORTISONE
     Indication: BACK PAIN
     Dosage: ONGOING: UNKNOWN
     Route: 065
  2. RITUXAN [Suspect]
     Active Substance: RITUXIMAB
     Indication: B-CELL LYMPHOMA
     Dosage: 1 MG/ML, 950ML INFUSION ;ONGOING: NO
     Route: 042
     Dates: start: 201801

REACTIONS (3)
  - Mesenteric panniculitis [Unknown]
  - Back pain [Unknown]
  - Myalgia [Unknown]

NARRATIVE: CASE EVENT DATE: 201801
